FAERS Safety Report 18079398 (Version 1)
Quarter: 2020Q3

REPORT INFORMATION
  Report Type: Spontaneous
  Country: US (occurrence: US)
  Receive Date: 20200727
  Receipt Date: 20200727
  Transmission Date: 20201103
  Serious: Yes (Life-Threatening, Hospitalization)
  Sender: FDA-Public Use
  Company Number: None

PATIENT
  Age: 81 Year
  Sex: Male
  Weight: 85.8 kg

DRUGS (7)
  1. VINCRISTINE [Concomitant]
     Active Substance: VINCRISTINE
     Dates: start: 20200214, end: 20200615
  2. ETOPOSIDE. [Concomitant]
     Active Substance: ETOPOSIDE
     Dates: start: 20200310, end: 20200615
  3. CYCLOPHOSPHAMIDE. [Concomitant]
     Active Substance: CYCLOPHOSPHAMIDE
     Dates: start: 20200214, end: 20200518
  4. PEGFILGRASTIM?CBQV [Suspect]
     Active Substance: PEGFILGRASTIM-CBQV
     Indication: LYMPHOMA
     Route: 058
     Dates: start: 20200218, end: 20200724
  5. PREDNISONE. [Concomitant]
     Active Substance: PREDNISONE
     Dates: start: 20200306, end: 20200716
  6. RITUXIMAB. [Concomitant]
     Active Substance: RITUXIMAB
     Dates: start: 20200215, end: 20200611
  7. DOXORUBICIN [Concomitant]
     Active Substance: DOXORUBICIN
     Dates: start: 20200306, end: 20200615

REACTIONS (4)
  - Pulmonary alveolar haemorrhage [None]
  - Fatigue [None]
  - Decreased appetite [None]
  - Dyspnoea [None]
